FAERS Safety Report 7398909-2 (Version None)
Quarter: 2011Q2

REPORT INFORMATION
  Report Type: 
  Country: None (occurrence: None)
  Receive Date: 20110407
  Receipt Date: 20110331
  Transmission Date: 20111010
  Serious: Yes (Other)
  Sender: FDA-Public Use
  Company Number: US-ABBOTT-11P-163-0716050-00

PATIENT
  Sex: Female
  Weight: 89.892 kg

DRUGS (2)
  1. HUMIRA [Suspect]
     Indication: ANKYLOSING SPONDYLITIS
     Dates: start: 20071101, end: 20100301
  2. HUMIRA [Suspect]
     Indication: CROHN'S DISEASE
     Dates: start: 20100501, end: 20100801

REACTIONS (14)
  - SCAR [None]
  - ANKYLOSING SPONDYLITIS [None]
  - FATIGUE [None]
  - WOUND INFECTION STAPHYLOCOCCAL [None]
  - UNEVALUABLE EVENT [None]
  - WOUND COMPLICATION [None]
  - DIARRHOEA [None]
  - WOUND [None]
  - OPEN WOUND [None]
  - GAIT DISTURBANCE [None]
  - BLOOD TEST ABNORMAL [None]
  - HYPERSENSITIVITY [None]
  - SINUSITIS [None]
  - HAEMORRHAGE [None]
